FAERS Safety Report 9845285 (Version 2)
Quarter: 2014Q1

REPORT INFORMATION
  Report Type: Spontaneous
  Country: FR (occurrence: FR)
  Receive Date: 20140127
  Receipt Date: 20140324
  Transmission Date: 20141002
  Serious: Yes (Disabling)
  Sender: FDA-Public Use
  Company Number: FR-ASTELLAS-2014EU000427

PATIENT
  Sex: Female
  Weight: 97 kg

DRUGS (4)
  1. ADVAGRAF [Suspect]
     Indication: RENAL TRANSPLANT
     Dosage: 12 MG, UID/QD
     Route: 048
     Dates: start: 20130820, end: 20131009
  2. PROGRAF [Concomitant]
     Indication: RENAL TRANSPLANT
     Dosage: 5.5 MG, BID
     Route: 065
  3. PREDNISONE [Concomitant]
     Indication: RENAL TRANSPLANT
     Dosage: 12 MG, UID/QD
     Route: 048
     Dates: start: 20100212
  4. MYCOPHENOLATE MOFETIL [Concomitant]
     Indication: RENAL TRANSPLANT
     Dosage: 2 G, BID
     Route: 048
     Dates: start: 20110202

REACTIONS (3)
  - Erythema [Recovered/Resolved]
  - Burning sensation [Recovered/Resolved]
  - Pruritus [Recovered/Resolved]
